FAERS Safety Report 9891037 (Version 1)
Quarter: 2014Q1

REPORT INFORMATION
  Report Type: Spontaneous
  Country: US (occurrence: None)
  Receive Date: 20140211
  Receipt Date: 20140211
  Transmission Date: 20141002
  Serious: No
  Sender: FDA-Public Use
  Company Number: None

PATIENT
  Age: 58 Year
  Sex: Female
  Weight: 51.71 kg

DRUGS (5)
  1. SIMVASTATIN [Suspect]
     Indication: BLOOD CHOLESTEROL INCREASED
     Dosage: 20 MG 1 ILL AT BEDTIME BY MOUTH
     Route: 048
     Dates: start: 20131107, end: 20131207
  2. LISINOPRIL [Concomitant]
  3. ONE A DAY VITAMIN [Concomitant]
  4. CALCIUM + D [Concomitant]
  5. FISH OIL TABLET [Concomitant]

REACTIONS (3)
  - Myalgia [None]
  - Tendonitis [None]
  - Arthralgia [None]
